FAERS Safety Report 25206493 (Version 1)
Quarter: 2025Q2

REPORT INFORMATION
  Report Type: Report from Study
  Country: US (occurrence: US)
  Receive Date: 20250417
  Receipt Date: 20250417
  Transmission Date: 20250717
  Serious: No
  Sender: ACADIA PHARMACEUTICALS
  Company Number: US-ACADIA PHARMACEUTICALS INC.-ACA-2025-PIM-004257

PATIENT
  Age: 72 Year
  Sex: Female

DRUGS (17)
  1. NUPLAZID [Suspect]
     Active Substance: PIMAVANSERIN TARTRATE
     Indication: Parkinson^s disease
     Dosage: 34 MILLIGRAM, QD
     Route: 048
     Dates: start: 20241105
  2. NUPLAZID [Suspect]
     Active Substance: PIMAVANSERIN TARTRATE
     Indication: Hallucination
  3. CARBIDOPA\LEVODOPA [Concomitant]
     Active Substance: CARBIDOPA\LEVODOPA
  4. LYRICA [Concomitant]
     Active Substance: PREGABALIN
  5. ASPIRIN [Concomitant]
     Active Substance: ASPIRIN
  6. ALL DAY ALLERGY [Concomitant]
     Active Substance: CETIRIZINE HYDROCHLORIDE
  7. CALCIUM CARBONATE [Concomitant]
     Active Substance: CALCIUM CARBONATE
  8. LIPITOR [Concomitant]
     Active Substance: ATORVASTATIN CALCIUM
  9. COENZYME Q10 [Concomitant]
     Active Substance: DIETARY SUPPLEMENT\UBIDECARENONE
  10. VICKS DAYQUIL [Concomitant]
     Active Substance: DEXTROMETHORPHAN HYDROBROMIDE\GUAIFENESIN
  11. VITAMIN C [Concomitant]
     Active Substance: ASCORBIC ACID
  12. FISH OIL [Concomitant]
     Active Substance: FISH OIL
  13. IBUPROFEN [Concomitant]
     Active Substance: IBUPROFEN
  14. LUTEIN [Concomitant]
     Active Substance: LUTEIN
  15. MELATONIN [Concomitant]
     Active Substance: MELATONIN
  16. VITAMINS NOS [Concomitant]
     Active Substance: VITAMINS
  17. OSTEO-BI-FLEX [Concomitant]

REACTIONS (1)
  - Tremor [Unknown]

NARRATIVE: CASE EVENT DATE: 20250408
